FAERS Safety Report 21616803 (Version 1)
Quarter: 2022Q4

REPORT INFORMATION
  Report Type: Spontaneous
  Country: US (occurrence: US)
  Receive Date: 20221118
  Receipt Date: 20221118
  Transmission Date: 20230112
  Serious: No
  Sender: FDA-Public Use
  Company Number: US-SANOFI-01364987

PATIENT
  Age: 74 Year
  Sex: Male

DRUGS (2)
  1. ALLEGRA D-12 HOUR [Suspect]
     Active Substance: FEXOFENADINE HYDROCHLORIDE\PSEUDOEPHEDRINE HYDROCHLORIDE
     Indication: Pulmonary congestion
  2. ALLEGRA ALLERGY [Suspect]
     Active Substance: FEXOFENADINE HYDROCHLORIDE
     Indication: Pulmonary congestion

REACTIONS (4)
  - Patient dissatisfaction with treatment [Unknown]
  - Cardiac disorder [Unknown]
  - Off label use [Unknown]
  - Sedation [Unknown]
